FAERS Safety Report 21115208 (Version 1)
Quarter: 2022Q3

REPORT INFORMATION
  Report Type: Spontaneous
  Country: RS (occurrence: RS)
  Receive Date: 20220721
  Receipt Date: 20220721
  Transmission Date: 20221026
  Serious: Yes (Other)
  Sender: FDA-Public Use
  Company Number: RS-009507513-2207SRB005717

PATIENT
  Age: 70 Year
  Sex: Female

DRUGS (6)
  1. LAGEVRIO [Suspect]
     Active Substance: MOLNUPIRAVIR
     Indication: SARS-CoV-2 test positive
     Dosage: 4 CAPSULES EVERY 12 HOURS
     Route: 048
     Dates: start: 20220714
  2. PANKLAV [Concomitant]
  3. METFORMIN HYDROCHLORIDE [Concomitant]
     Active Substance: METFORMIN HYDROCHLORIDE
  4. VITAMIN C [Concomitant]
     Active Substance: ASCORBIC ACID
  5. CHOLECALCIFEROL [Concomitant]
     Active Substance: CHOLECALCIFEROL
  6. ZINC [Concomitant]
     Active Substance: ZINC
     Indication: SARS-CoV-2 test positive

REACTIONS (9)
  - Loss of consciousness [Unknown]
  - Dyspnoea [Unknown]
  - Dizziness [Unknown]
  - Vision blurred [Unknown]
  - Hyperhidrosis [Unknown]
  - Insomnia [Unknown]
  - Malaise [Unknown]
  - Gait disturbance [Unknown]
  - Asthenia [Unknown]

NARRATIVE: CASE EVENT DATE: 20220701
